FAERS Safety Report 19873580 (Version 1)
Quarter: 2021Q3

REPORT INFORMATION
  Report Type: Spontaneous
  Country: JP (occurrence: JP)
  Receive Date: 20210923
  Receipt Date: 20210923
  Transmission Date: 20211014
  Serious: Yes (Hospitalization)
  Sender: FDA-Public Use
  Company Number: JP-PFIZER INC-202101199959

PATIENT
  Age: 4 Decade
  Sex: Male

DRUGS (1)
  1. SELARA [Suspect]
     Active Substance: EPLERENONE
     Dosage: UNK
     Route: 048

REACTIONS (2)
  - Shock [Unknown]
  - Acute kidney injury [Unknown]
